FAERS Safety Report 4867359-2 (Version None)
Quarter: 2005Q4

REPORT INFORMATION
  Report Type: 
  Country: None (occurrence: None)
  Receive Date: 20051228
  Receipt Date: 20051216
  Transmission Date: 20060501
  Serious: Yes (Hospitalization)
  Sender: FDA-Public Use
  Company Number: GRWYE246519DEC05

PATIENT
  Sex: Female

DRUGS (3)
  1. ENBREL [Suspect]
     Indication: RHEUMATOID ARTHRITIS
     Route: 058
     Dates: start: 20040101, end: 20051101
  2. NEORAL [Concomitant]
  3. PREZOLON [Concomitant]

REACTIONS (3)
  - OSTEOPOROTIC FRACTURE [None]
  - SEPSIS [None]
  - URINARY TRACT INFECTION [None]
